FAERS Safety Report 14221363 (Version 6)
Quarter: 2018Q1

REPORT INFORMATION
  Report Type: Spontaneous
  Country: US (occurrence: US)
  Receive Date: 20171124
  Receipt Date: 20180226
  Transmission Date: 20180508
  Serious: No
  Sender: FDA-Public Use
  Company Number: US-PFIZER INC-2017505497

PATIENT
  Age: 31 Year
  Sex: Female
  Weight: 104 kg

DRUGS (4)
  1. ATROPINE SULFATE/DIPHENOXYLATE HYDROCHLORIDE [Suspect]
     Active Substance: ATROPINE SULFATE\DIPHENOXYLATE HYDROCHLORIDE
     Indication: IRRITABLE BOWEL SYNDROME
     Dosage: 2 DF, 2X/DAY(2.5MG, 2 PILLS TWICE A DAY)
     Route: 048
     Dates: start: 201706, end: 20171119
  2. ATROPINE SULFATE/DIPHENOXYLATE HYDROCHLORIDE [Suspect]
     Active Substance: ATROPINE SULFATE\DIPHENOXYLATE HYDROCHLORIDE
     Indication: CROHN^S DISEASE
     Dosage: UNK
  3. ALOSETRON HYDROCHLORIDE. [Concomitant]
     Active Substance: ALOSETRON HYDROCHLORIDE
     Indication: IRRITABLE BOWEL SYNDROME
     Dosage: 0.5 MG, 2X/DAY (0.5MG, PILL, TWICE A DAY)
  4. ALOSETRON HYDROCHLORIDE. [Concomitant]
     Active Substance: ALOSETRON HYDROCHLORIDE
     Indication: CROHN^S DISEASE

REACTIONS (5)
  - Drug ineffective [Unknown]
  - Product use issue [Unknown]
  - Abdominal pain [Unknown]
  - Vomiting [Unknown]
  - Diarrhoea [Unknown]

NARRATIVE: CASE EVENT DATE: 201706
